FAERS Safety Report 4845930-1 (Version None)
Quarter: 2005Q4

REPORT INFORMATION
  Report Type: 
  Country: None (occurrence: None)
  Receive Date: 20051206
  Receipt Date: 20051125
  Transmission Date: 20060501
  Serious: Yes (Disabling)
  Sender: FDA-Public Use
  Company Number: DE-BRISTOL-MYERS SQUIBB COMPANY-13195268

PATIENT
  Age: 64 Year
  Sex: Male
  Weight: 60 kg

DRUGS (2)
  1. LITALIR [Suspect]
     Indication: HAIRY CELL LEUKAEMIA
  2. PANTOZOL [Concomitant]
     Indication: REFLUX OESOPHAGITIS

REACTIONS (1)
  - POLYNEUROPATHY [None]
